FAERS Safety Report 11349637 (Version 1)
Quarter: 2015Q3

REPORT INFORMATION
  Report Type: Spontaneous
  Country: US (occurrence: None)
  Receive Date: 20150805
  Receipt Date: 20150805
  Transmission Date: 20151125
  Serious: Yes (Other)
  Sender: FDA-Public Use
  Company Number: US-ZYDUS-008766

PATIENT
  Age: 48 Year
  Sex: Male

DRUGS (1)
  1. SIROLIMUS. [Suspect]
     Active Substance: SIROLIMUS

REACTIONS (4)
  - Eosinophilia [None]
  - Respiratory failure [None]
  - Toxicity to various agents [None]
  - Lung consolidation [None]
